FAERS Safety Report 7504294-5 (Version None)
Quarter: 2011Q2

REPORT INFORMATION
  Report Type: 
  Country: None (occurrence: None)
  Receive Date: 20110525
  Receipt Date: 20110523
  Transmission Date: 20111010
  Serious: Yes (Other)
  Sender: FDA-Public Use
  Company Number: US-CTI_01358_2011

PATIENT
  Age: 67 Year
  Sex: Female

DRUGS (1)
  1. FACTIVE [Suspect]
     Indication: SINUSITIS
     Route: 048
     Dates: start: 20110430, end: 20110504

REACTIONS (6)
  - MENTAL STATUS CHANGES [None]
  - FEELING ABNORMAL [None]
  - TEARFULNESS [None]
  - SOMNOLENCE [None]
  - ANXIETY [None]
  - DEPRESSED LEVEL OF CONSCIOUSNESS [None]
